FAERS Safety Report 9186270 (Version 2)
Quarter: 2013Q2

REPORT INFORMATION
  Report Type: Spontaneous
  Country: JP (occurrence: JP)
  Receive Date: 20130325
  Receipt Date: 20130408
  Transmission Date: 20140414
  Serious: Yes (Life-Threatening)
  Sender: FDA-Public Use
  Company Number: JP-GLAXOSMITHKLINE-B0875633A

PATIENT
  Age: 45 Year
  Sex: Female

DRUGS (7)
  1. VOTRIENT [Suspect]
     Indication: UTERINE LEIOMYOSARCOMA
     Dosage: 800MG PER DAY
     Route: 048
     Dates: start: 20130304, end: 20130311
  2. OXYCODONE [Concomitant]
     Indication: CANCER PAIN
     Dosage: 100MG PER DAY
     Dates: start: 20130309
  3. ROPION [Concomitant]
     Indication: CANCER PAIN
     Dosage: 150MG PER DAY
     Route: 042
     Dates: start: 20130309
  4. XYLOCAINE [Concomitant]
     Indication: CANCER PAIN
     Dosage: 200ML PER DAY
     Dates: start: 20130309
  5. CLIDAMACIN [Concomitant]
     Indication: INFECTION
     Dosage: 600MG TWICE PER DAY
     Dates: start: 20130309
  6. PRIMPERAN [Concomitant]
     Dosage: 10MG PER DAY
     Dates: start: 20130309
  7. CEFTRIAXONE SODIUM [Concomitant]
     Indication: INFECTION
     Dosage: 1G TWICE PER DAY
     Route: 042
     Dates: start: 20130309

REACTIONS (1)
  - Supraventricular tachycardia [Recovered/Resolved]
